FAERS Safety Report 20945389 (Version 3)
Quarter: 2022Q3

REPORT INFORMATION
  Report Type: Spontaneous
  Country: US (occurrence: US)
  Receive Date: 20220610
  Receipt Date: 20220729
  Transmission Date: 20221027
  Serious: No
  Sender: FDA-Public Use
  Company Number: US-AIMMUNE THERAPEUTICS, INC.-2022AIMT00446

PATIENT

DRUGS (4)
  1. PALFORZIA [Suspect]
     Active Substance: PEANUT
     Indication: Food allergy
     Dosage: 12 MG, 1X/DAY
     Route: 048
     Dates: start: 20220303
  2. PALFORZIA [Suspect]
     Active Substance: PEANUT
     Dosage: 12 MG, ONCE, LAST DOSE PRIOR EVENT OF TCHY THROAT
     Route: 048
     Dates: start: 20220303, end: 20220303
  3. PALFORZIA [Suspect]
     Active Substance: PEANUT
     Dosage: 120 MG, 1X/DAY
     Route: 048
     Dates: start: 20220518
  4. PALFORZIA [Suspect]
     Active Substance: PEANUT
     Dosage: 120 MG, ONCE, LAST DOSE PRIOR EVENT OF ITCHY MOUTH
     Route: 048
     Dates: start: 20220518, end: 20220518

REACTIONS (2)
  - Throat irritation [Recovered/Resolved]
  - Oral pruritus [Recovered/Resolved]

NARRATIVE: CASE EVENT DATE: 20220303
